FAERS Safety Report 23604531 (Version 1)
Quarter: 2024Q1

REPORT INFORMATION
  Report Type: Spontaneous
  Country: CN (occurrence: CN)
  Receive Date: 20240307
  Receipt Date: 20240307
  Transmission Date: 20240409
  Serious: Yes (Hospitalization, Other)
  Sender: FDA-Public Use
  Company Number: None

PATIENT
  Age: 13 Year
  Sex: Female
  Weight: 38 kg

DRUGS (8)
  1. CYCLOPHOSPHAMIDE [Suspect]
     Active Substance: CYCLOPHOSPHAMIDE
     Indication: Brain neoplasm malignant
     Dosage: 0.8 G, ONE TIME IN ONE DAY
     Route: 042
     Dates: start: 20240216, end: 20240216
  2. CYCLOPHOSPHAMIDE [Suspect]
     Active Substance: CYCLOPHOSPHAMIDE
     Dosage: 0.4 G, ONE TIME IN ONE DAY, DILUTED WITH 40ML SODIUM CHLORIDE (NORMAL SALINE)
     Route: 042
     Dates: start: 20240216, end: 20240216
  3. SODIUM CHLORIDE [Suspect]
     Active Substance: SODIUM CHLORIDE
     Indication: Medication dilution
     Dosage: 40 ML, ONE TIME IN ONE DAY, USED TO DILUTE 0.4G CYCLOPHOSPHAMIDE
     Route: 042
     Dates: start: 20240216, end: 20240216
  4. SODIUM CHLORIDE [Suspect]
     Active Substance: SODIUM CHLORIDE
     Dosage: 500 ML, ONE TIME IN ONE DAY, USED TO DILUTE 45 MG NUOXIN (CISPLATIN)
     Route: 041
     Dates: start: 20240216, end: 20240216
  5. SODIUM CHLORIDE [Suspect]
     Active Substance: SODIUM CHLORIDE
     Dosage: 500 ML, 11 TIMES IN ONE DAY, USED TO DILUTE 1.6MG VINCRISTINE SULFATE
     Route: 041
     Dates: start: 20240224, end: 20240224
  6. VINCRISTINE SULFATE [Suspect]
     Active Substance: VINCRISTINE SULFATE
     Indication: Brain neoplasm malignant
     Dosage: 1.6 MG, ONE TIME IN ONE DAY
     Route: 041
     Dates: start: 20240216, end: 20240216
  7. VINCRISTINE SULFATE [Suspect]
     Active Substance: VINCRISTINE SULFATE
     Dosage: 1.6 MG, 11 TIMES IN ONE DAY, DILUTED WITH 500ML SODIUM CHLORIDE (NORMAL SALINE)
     Route: 041
     Dates: start: 20240224, end: 20240224
  8. CISPLATIN [Suspect]
     Active Substance: CISPLATIN
     Indication: Brain neoplasm malignant
     Dosage: 45 MG, ONE TIME IN ONE DAY, DILUTED WITH 500ML SODIUM CHLORIDE (NORMAL SALINE)
     Route: 041
     Dates: start: 20240216, end: 20240216

REACTIONS (1)
  - Myelosuppression [Recovering/Resolving]

NARRATIVE: CASE EVENT DATE: 20240221
